FAERS Safety Report 5817351-6 (Version None)
Quarter: 2008Q3

REPORT INFORMATION
  Report Type: 
  Country: None (occurrence: None)
  Receive Date: 20080715
  Receipt Date: 20080624
  Transmission Date: 20090109
  Serious: Yes (Other)
  Sender: FDA-Public Use
  Company Number: GB-DEXPHARM-20080699

PATIENT
  Age: 33 Year
  Sex: Male

DRUGS (3)
  1. OMEPRAZOLE [Suspect]
     Indication: DYSPEPSIA
     Dosage: 2/1 DAYS (20 MG MILLIGRAM(S), ORAL
     Route: 048
     Dates: start: 20080407, end: 20080522
  2. CIPROFLOXACIN [Concomitant]
  3. MAGNESIUM TRISILICATE [Concomitant]

REACTIONS (3)
  - BLOOD CREATINE PHOSPHOKINASE INCREASED [None]
  - MUSCULAR WEAKNESS [None]
  - MYOSITIS [None]
